FAERS Safety Report 8260241-2 (Version None)
Quarter: 2012Q2

REPORT INFORMATION
  Report Type: 
  Country: None (occurrence: None)
  Receive Date: 20120404
  Receipt Date: 20120330
  Transmission Date: 20120825
  Serious: Yes (Death)
  Sender: FDA-Public Use
  Company Number: US-ROXANE LABORATORIES, INC.-2012-RO-00949RO

PATIENT

DRUGS (10)
  1. CITALOPRAM HYDROBROMIDE [Suspect]
  2. ALPRAZOLAM [Suspect]
  3. PROMETHAZINE [Suspect]
  4. TRAZODONE HCL [Suspect]
  5. AMLODIPINE [Suspect]
  6. METHADONE HCL [Suspect]
  7. NAPROXEN [Suspect]
  8. MARIJUANA [Suspect]
  9. PIOGLITAZONE [Suspect]
  10. ESCITALOPRAM [Suspect]

REACTIONS (1)
  - TOXICITY TO VARIOUS AGENTS [None]
